FAERS Safety Report 10180533 (Version 2)
Quarter: 2014Q2

REPORT INFORMATION
  Report Type: Spontaneous
  Country: US (occurrence: US)
  Receive Date: 20140519
  Receipt Date: 20140519
  Transmission Date: 20141212
  Serious: No
  Sender: FDA-Public Use
  Company Number: US-AMGEN-USASP2013079907

PATIENT
  Age: 75 Year
  Sex: Female
  Weight: 61.68 kg

DRUGS (3)
  1. PROLIA [Suspect]
     Indication: OSTEOPOROSIS
     Dosage: 60 MG, Q6MO
     Route: 058
     Dates: start: 20130417
  2. CALCIUM                            /07357001/ [Concomitant]
     Dosage: 600 MG, QD
     Route: 048
  3. VITAMIN D3 [Concomitant]
     Dosage: 1000 UNIT, QD
     Route: 048

REACTIONS (6)
  - Breast mass [Unknown]
  - Cerumen impaction [Not Recovered/Not Resolved]
  - Hearing impaired [Unknown]
  - Flatulence [Recovered/Resolved]
  - Rash [Not Recovered/Not Resolved]
  - Pain in extremity [Not Recovered/Not Resolved]
